FAERS Safety Report 21859106 (Version 9)
Quarter: 2024Q2

REPORT INFORMATION
  Report Type: Spontaneous
  Country: CA (occurrence: CA)
  Receive Date: 20230113
  Receipt Date: 20240408
  Transmission Date: 20240716
  Serious: Yes (Other)
  Sender: FDA-Public Use
  Company Number: CA-ROCHE-3257878

PATIENT
  Age: 74 Year
  Sex: Female

DRUGS (20)
  1. CLONAZEPAM [Suspect]
     Active Substance: CLONAZEPAM
     Indication: Insomnia
     Dosage: 1 DOSAGE FORM, PRN
     Route: 048
     Dates: start: 2015
  2. CLONAZEPAM [Suspect]
     Active Substance: CLONAZEPAM
     Indication: Insomnia
     Dosage: 1 DOSAGE FORM, PRN
     Route: 048
  3. XOLAIR [Suspect]
     Active Substance: OMALIZUMAB
     Indication: Chronic spontaneous urticaria
     Dosage: 300 MG, EVERY 4 WEEKS/POWDER AND SOLVENT FOR SOLUTION FOR INJECTION 150 MG
     Route: 058
     Dates: start: 20180524, end: 20180524
  4. XOLAIR [Suspect]
     Active Substance: OMALIZUMAB
     Indication: Chronic spontaneous urticaria
     Dosage: 300 MG, EVERY 4 WEEKS
     Route: 058
     Dates: start: 20180525
  5. XOLAIR [Suspect]
     Active Substance: OMALIZUMAB
     Indication: Chronic spontaneous urticaria
     Dosage: OMALIZUMAB PRE-FILLED SYRINGE (BATCH/LOT NUMBER: SHHV5, EXPIRATION DATE: AUG 2025) FROM 25 MAY 20...
     Route: 058
     Dates: start: 20230525
  6. XOLAIR [Suspect]
     Active Substance: OMALIZUMAB
     Indication: Chronic spontaneous urticaria
     Route: 058
  7. XOLAIR [Suspect]
     Active Substance: OMALIZUMAB
     Indication: Chronic spontaneous urticaria
     Route: 058
  8. AMLODIPINE [Suspect]
     Active Substance: AMLODIPINE BESYLATE
     Indication: Hypertension
     Dosage: 1 DOSAGE FORM, QD?DAILY DOSE: 1 DOSAGE FORM
     Route: 048
     Dates: start: 2015
  9. AMLODIPINE [Suspect]
     Active Substance: AMLODIPINE BESYLATE
     Indication: Insomnia
     Dosage: 1 DOSAGE FORM, QD?DAILY DOSE: 1 DOSAGE FORM
     Route: 048
     Dates: start: 2015
  10. AMLODIPINE [Suspect]
     Active Substance: AMLODIPINE BESYLATE
     Indication: Hypertension
     Route: 048
  11. AMLODIPINE [Suspect]
     Active Substance: AMLODIPINE BESYLATE
     Indication: Insomnia
     Route: 048
  12. RUPATADINE FUMARATE [Concomitant]
     Active Substance: RUPATADINE FUMARATE
     Indication: Chronic spontaneous urticaria
     Dosage: 1 DOSAGE FORM, TID?DAILY DOSE: 3 DOSAGE FORM
     Dates: start: 20180516
  13. TRANDOLAPRIL [Concomitant]
     Active Substance: TRANDOLAPRIL
     Indication: Blood pressure measurement
     Dosage: 1 DOSAGE FORM, QD?DAILY DOSE: 1 DOSAGE FORM
     Dates: start: 2015
  14. TRANDOLAPRIL [Concomitant]
     Active Substance: TRANDOLAPRIL
     Indication: Blood pressure measurement
     Dosage: 1 DOSAGE FORM, QD?DAILY DOSE: 1 DOSAGE FORM
  15. TRANDOLAPRIL [Concomitant]
     Active Substance: TRANDOLAPRIL
     Indication: Blood pressure measurement
  16. CYMBALTA [Concomitant]
     Active Substance: DULOXETINE HYDROCHLORIDE
     Indication: Depression
     Dosage: 1 DOSAGE FORM, QD?DAILY DOSE: 1 DOSAGE FORM
     Dates: start: 2015
  17. BILASTINE [Concomitant]
     Active Substance: BILASTINE
     Dates: start: 20221205
  18. PREDNISONE [Concomitant]
     Active Substance: PREDNISONE
     Dates: start: 20230103
  19. PREDNISONE [Concomitant]
     Active Substance: PREDNISONE
  20. RUPATADINE FUMARATE [Concomitant]
     Active Substance: RUPATADINE FUMARATE
     Indication: Chronic spontaneous urticaria
     Dosage: 3 DOSAGE FORM, QD

REACTIONS (8)
  - Urticaria [Unknown]
  - Sleep disorder [Unknown]
  - Herpes zoster [Unknown]
  - Nasopharyngitis [Unknown]
  - Rash [Unknown]
  - Product use in unapproved indication [Unknown]
  - Drug ineffective [Unknown]
  - Malaise [Unknown]

NARRATIVE: CASE EVENT DATE: 20150101
